FAERS Safety Report 5193970-8 (Version None)
Quarter: 2006Q4

REPORT INFORMATION
  Report Type: 
  Country: None (occurrence: None)
  Receive Date: 20061228
  Receipt Date: 20061220
  Transmission Date: 20070319
  Serious: Yes (Other)
  Sender: FDA-Public Use
  Company Number: US-JNJFOC-20061206332

PATIENT
  Age: 31 Year
  Sex: Female
  Weight: 68.04 kg

DRUGS (2)
  1. TOPAMAX [Suspect]
     Indication: MIGRAINE
  2. PAIN MEDICATION [Concomitant]
     Indication: ANALGESIC EFFECT

REACTIONS (1)
  - EYE HAEMORRHAGE [None]
